FAERS Safety Report 5777447-4 (Version None)
Quarter: 2008Q2

REPORT INFORMATION
  Report Type: 
  Country: None (occurrence: None)
  Receive Date: 20080618
  Receipt Date: 20080606
  Transmission Date: 20081010
  Serious: Yes (Death)
  Sender: FDA-Public Use
  Company Number: ES-SANOFI-SYNTHELABO-F01200800307

PATIENT
  Sex: Male

DRUGS (7)
  1. OMEPRAZOLE MAGNESIUM [Concomitant]
     Indication: PROPHYLAXIS AGAINST GASTROINTESTINAL ULCER
     Dosage: 10 MG
     Dates: start: 20070601
  2. UNSPECIFIED THIAZIDE [Concomitant]
     Indication: HYPERTENSION
     Dosage: 12.5 MG
     Dates: start: 20070601
  3. ENALAPRIL MALEATE [Concomitant]
     Dosage: 20 MG
     Dates: start: 20070601
  4. METFORMIN [Concomitant]
     Indication: HYPERGLYCAEMIA
     Dosage: 1275 MG
     Dates: start: 20070601
  5. ASPIRIN [Concomitant]
     Indication: HYPERTENSION
     Dosage: 100 MG
     Dates: start: 20070601
  6. MEGESTROL ACETATE [Concomitant]
     Indication: FLUSHING
     Dosage: 160 MG
     Dates: start: 20071203, end: 20071210
  7. ELIGARD [Suspect]
     Indication: PROSTATE CANCER
     Route: 058

REACTIONS (1)
  - ISCHAEMIC CARDIOMYOPATHY [None]
